FAERS Safety Report 24235833 (Version 5)
Quarter: 2025Q2

REPORT INFORMATION
  Report Type: Report from Study
  Country: JP (occurrence: JP)
  Receive Date: 20240822
  Receipt Date: 20250627
  Transmission Date: 20250716
  Serious: Yes (Other)
  Sender: TAKEDA
  Company Number: JP-TAKEDA-2023TJP017517

PATIENT
  Age: 16 Year
  Sex: Male

DRUGS (5)
  1. RURIOCTOCOG ALFA PEGOL [Suspect]
     Active Substance: RURIOCTOCOG ALFA PEGOL
     Indication: Factor VIII deficiency
     Dosage: 2000 INTERNATIONAL UNIT, 2/WEEK
     Dates: start: 202309
  2. RURIOCTOCOG ALFA PEGOL [Suspect]
     Active Substance: RURIOCTOCOG ALFA PEGOL
     Dosage: 3000 INTERNATIONAL UNIT, 2/WEEK
     Dates: start: 202401
  3. RURIOCTOCOG ALFA PEGOL [Suspect]
     Active Substance: RURIOCTOCOG ALFA PEGOL
     Dosage: 3000 INTERNATIONAL UNIT, 3/WEEK
     Dates: start: 202404
  4. RURIOCTOCOG ALFA PEGOL [Suspect]
     Active Substance: RURIOCTOCOG ALFA PEGOL
     Dosage: 3000 INTERNATIONAL UNIT, QD
  5. RURIOCTOCOG ALFA PEGOL [Suspect]
     Active Substance: RURIOCTOCOG ALFA PEGOL
     Dosage: 3000 INTERNATIONAL UNIT, 3/WEEK

REACTIONS (16)
  - Haemarthrosis [Unknown]
  - Dental caries [Unknown]
  - Angiopathy [Unknown]
  - Muscle strain [Recovered/Resolved]
  - Limb fracture [Recovered/Resolved]
  - Myalgia [Unknown]
  - Cough [Unknown]
  - Acne [Unknown]
  - Pain in extremity [Unknown]
  - Back pain [Unknown]
  - Peripheral swelling [Unknown]
  - Arthropod sting [Unknown]
  - Medial tibial stress syndrome [Unknown]
  - Nasopharyngitis [Unknown]
  - Arthralgia [Unknown]
  - Treatment noncompliance [Unknown]

NARRATIVE: CASE EVENT DATE: 20240715
